FAERS Safety Report 5192504-1 (Version None)
Quarter: 2006Q4

REPORT INFORMATION
  Report Type: 
  Country: None (occurrence: None)
  Receive Date: 20061220
  Receipt Date: 20061211
  Transmission Date: 20070319
  Serious: Yes (Other)
  Sender: FDA-Public Use
  Company Number: 2006EU002601

PATIENT
  Age: 46 Year
  Sex: Female

DRUGS (1)
  1. VESICARE [Suspect]
     Indication: MICTURITION URGENCY
     Dosage: 10 MG, UID/QD, ORAL
     Route: 048
     Dates: start: 20030101, end: 20061001

REACTIONS (4)
  - LUNG DISORDER [None]
  - LUNG INFECTION [None]
  - RESPIRATORY TRACT INFECTION [None]
  - VIRAL INFECTION [None]
